FAERS Safety Report 20435893 (Version 1)
Quarter: 2022Q1

REPORT INFORMATION
  Report Type: Spontaneous
  Country: FR (occurrence: FR)
  Receive Date: 20220207
  Receipt Date: 20220207
  Transmission Date: 20220423
  Serious: Yes (Other)
  Sender: FDA-Public Use
  Company Number: FR-LUPIN PHARMACEUTICALS INC.-2022-01485

PATIENT
  Age: 53 Year
  Sex: Female

DRUGS (4)
  1. ESCITALOPRAM [Suspect]
     Active Substance: ESCITALOPRAM OXALATE
     Indication: Major depression
     Dosage: UNK
     Route: 065
  2. VENLAFAXINE [Suspect]
     Active Substance: VENLAFAXINE HYDROCHLORIDE
     Indication: Major depression
     Dosage: UNK
     Route: 065
  3. VENLAFAXINE [Suspect]
     Active Substance: VENLAFAXINE HYDROCHLORIDE
     Dosage: 225 MILLIGRAM, QD
     Route: 065
  4. NITROUS OXIDE [Concomitant]
     Active Substance: NITROUS OXIDE
     Indication: Major depression
     Dosage: UNK, (REPORTED AS, 50% N2O/50% O2; RECEIVED THOUGH FACIAL MASK WITH GAS FLOW OF BETWEEN 9 AND 12 LIT

REACTIONS (1)
  - Drug resistance [Unknown]
